FAERS Safety Report 6763454-1 (Version None)
Quarter: 2010Q2

REPORT INFORMATION
  Report Type: 
  Country: None (occurrence: None)
  Receive Date: 20100610
  Receipt Date: 20100527
  Transmission Date: 20101027
  Serious: Yes (Hospitalization)
  Sender: FDA-Public Use
  Company Number: US-ELI_LILLY_AND_COMPANY-US201006000657

PATIENT
  Age: 66 Year
  Sex: Female

DRUGS (2)
  1. FORTEO [Suspect]
     Indication: OSTEOPOROSIS
     Dosage: UNK, UNK
     Dates: start: 20081201, end: 20090201
  2. FORTEO [Suspect]
     Dosage: UNK, UNK

REACTIONS (3)
  - GASTROENTERITIS VIRAL [None]
  - HERPES ZOSTER [None]
  - HYPERHIDROSIS [None]
